FAERS Safety Report 19650538 (Version 1)
Quarter: 2021Q3

REPORT INFORMATION
  Report Type: Spontaneous
  Country: US (occurrence: US)
  Receive Date: 20210802
  Receipt Date: 20210802
  Transmission Date: 20211014
  Serious: No
  Sender: FDA-Public Use
  Company Number: None

PATIENT
  Age: 78 Year
  Sex: Male
  Weight: 108 kg

DRUGS (1)
  1. ENOXAPARIN (GENERIC) (ENOXAPARIN 120MG/0.8ML INJ, SYRINGE,0.8ML (GENER [Suspect]
     Active Substance: ENOXAPARIN
     Indication: SURGERY
     Route: 058
     Dates: start: 20210529, end: 20210603

REACTIONS (7)
  - Pain in extremity [None]
  - Haematoma [None]
  - Oedema peripheral [None]
  - Myalgia [None]
  - Nephrotic syndrome [None]
  - Cellulitis [None]
  - Wound drainage [None]

NARRATIVE: CASE EVENT DATE: 20210603
